FAERS Safety Report 9376794 (Version 1)
Quarter: 2013Q3

REPORT INFORMATION
  Report Type: Spontaneous
  Country: IE (occurrence: IE)
  Receive Date: 20130701
  Receipt Date: 20130701
  Transmission Date: 20140515
  Serious: Yes (Other)
  Sender: FDA-Public Use
  Company Number: IE-JNJFOC-20130612730

PATIENT
  Age: 61 Year
  Sex: Male

DRUGS (5)
  1. REMICADE [Suspect]
     Indication: RHEUMATOID ARTHRITIS
     Dosage: DOSE 208 (UNITS UNSPECIFIED)
     Route: 042
     Dates: start: 20130429, end: 20130429
  2. DIOVAN [Concomitant]
     Route: 048
  3. CLONFOLIC [Concomitant]
     Dosage: EXCEPT DAY WHEN METHOTREXATE IS TAKEN
     Route: 048
  4. ZYDOL [Concomitant]
     Route: 048
  5. METHOTREXATE [Concomitant]
     Route: 058

REACTIONS (8)
  - Flushing [Recovered/Resolved]
  - Nausea [Recovered/Resolved]
  - Headache [Recovered/Resolved]
  - Chills [Recovered/Resolved]
  - Body temperature increased [Recovered/Resolved]
  - Heart rate increased [Recovered/Resolved]
  - Oxygen saturation decreased [Recovered/Resolved]
  - Infusion related reaction [Recovered/Resolved]
